FAERS Safety Report 5088205-0 (Version None)
Quarter: 2006Q3

REPORT INFORMATION
  Report Type: 
  Country: None (occurrence: None)
  Receive Date: 20060823
  Receipt Date: 20060823
  Transmission Date: 20061208
  Serious: Yes (Hospitalization)
  Sender: FDA-Public Use
  Company Number: None

PATIENT
  Age: 54 Year
  Sex: Male
  Weight: 80.1 kg

DRUGS (1)
  1. WARFARIN SODIUM [Suspect]
     Indication: HEART VALVE REPLACEMENT
     Dosage: 7.5 MG QD PO [SEVERAL YEARS]
     Route: 048

REACTIONS (4)
  - BACK PAIN [None]
  - HAEMATURIA [None]
  - INTERNATIONAL NORMALISED RATIO FLUCTUATION [None]
  - THYROID CANCER [None]
